FAERS Safety Report 4623519-7 (Version None)
Quarter: 2005Q1

REPORT INFORMATION
  Report Type: 
  Country: None (occurrence: None)
  Receive Date: 20050330
  Receipt Date: 20050315
  Transmission Date: 20050727
  Serious: Yes (Other)
  Sender: FDA-Public Use
  Company Number: 2250051-2005-00107

PATIENT
  Sex: Female

DRUGS (1)
  1. RHOGAM [Suspect]
     Dosage: 300 UG IM
     Route: 030
     Dates: start: 20050216

REACTIONS (3)
  - BLOOD PRESSURE INCREASED [None]
  - DRUG EXPOSURE DURING PREGNANCY [None]
  - ELECTROCARDIOGRAM ABNORMAL [None]
